FAERS Safety Report 16668205 (Version 1)
Quarter: 2019Q3

REPORT INFORMATION
  Report Type: Spontaneous
  Country: US (occurrence: US)
  Receive Date: 20190802
  Receipt Date: 20190802
  Transmission Date: 20191004
  Serious: Yes (Hospitalization)
  Sender: FDA-Public Use
  Company Number: None

PATIENT
  Age: 56 Year
  Sex: Female
  Weight: 62.5 kg

DRUGS (11)
  1. ACYCLOVIR. [Concomitant]
     Active Substance: ACYCLOVIR
  2. DAPSONE. [Concomitant]
     Active Substance: DAPSONE
  3. LANSOPRAZOLE. [Concomitant]
     Active Substance: LANSOPRAZOLE
  4. ONDANSETRON [Concomitant]
     Active Substance: ONDANSETRON
  5. LOPERAMIDE [Concomitant]
     Active Substance: LOPERAMIDE
  6. OLANZAPINE. [Concomitant]
     Active Substance: OLANZAPINE
  7. ALUMINUM-MAGNESIUM HYDROXIDE-SIMETHICONE [Concomitant]
  8. YESCARTA [Suspect]
     Active Substance: AXICABTAGENE CILOLEUCEL
     Indication: DIFFUSE LARGE B-CELL LYMPHOMA
     Dates: start: 20181012, end: 20181012
  9. FLUCONAZOLE. [Concomitant]
     Active Substance: FLUCONAZOLE
  10. METOPROLOL TARTRATE. [Concomitant]
     Active Substance: METOPROLOL TARTRATE
  11. ACETAMINOPHEN. [Concomitant]
     Active Substance: ACETAMINOPHEN

REACTIONS (6)
  - Headache [None]
  - Chills [None]
  - Hypertension [None]
  - Pyrexia [None]
  - Tachycardia [None]
  - Infusion related reaction [None]

NARRATIVE: CASE EVENT DATE: 20181013
